FAERS Safety Report 4282072-0 (Version None)
Quarter: 2004Q1

REPORT INFORMATION
  Report Type: 
  Country: None (occurrence: None)
  Receive Date: 20040130
  Receipt Date: 20030116
  Transmission Date: 20041129
  Serious: No
  Sender: FDA-Public Use
  Company Number: US-BRISTOL-MYERS SQUIBB COMPANY-12161014

PATIENT
  Age: 57 Year
  Sex: Female
  Weight: 61 kg

DRUGS (3)
  1. TRAZODONE HCL [Suspect]
     Indication: SLEEP DISORDER
     Dosage: 150 MG HS;APPROX 2WKS;WAS PREVIOUSLY ON A DIFFERENT MANUFACTURER TRAZODONE ON APOTHECON BRAND
     Route: 048
  2. ACTONEL [Concomitant]
     Dosage: ONCE A WEEK
  3. NEURONTIN [Concomitant]

REACTIONS (1)
  - INSOMNIA [None]
